FAERS Safety Report 24323378 (Version 3)
Quarter: 2024Q3

REPORT INFORMATION
  Report Type: Spontaneous
  Country: PL (occurrence: PL)
  Receive Date: 20240916
  Receipt Date: 20240925
  Transmission Date: 20241017
  Serious: Yes (Hospitalization, Other)
  Sender: PFIZER
  Company Number: PL-TEVA-VS-3238014

PATIENT
  Age: 84 Year
  Sex: Female

DRUGS (5)
  1. CONTROLOC [Suspect]
     Active Substance: PANTOPRAZOLE SODIUM
     Dosage: UNK
     Route: 065
  2. ASPIRIN [Suspect]
     Active Substance: ASPIRIN
     Dosage: UNK
     Route: 065
  3. CHOLECALCIFEROL [Suspect]
     Active Substance: CHOLECALCIFEROL
     Dosage: 40 GTT DROPS, 1/WEEK
     Route: 065
  4. CALCIUM CARBONATE [Suspect]
     Active Substance: CALCIUM CARBONATE
     Dosage: 1 DOSAGE FORM, QD, 500, CALPEROS
     Route: 065
  5. ALENDRONATE SODIUM [Suspect]
     Active Substance: ALENDRONATE SODIUM
     Indication: Osteoporosis
     Dosage: 70 FOR 1.5 YEARS
     Route: 065

REACTIONS (3)
  - Spinal fracture [Recovering/Resolving]
  - Nephrocalcinosis [Unknown]
  - Calcinosis [Unknown]

NARRATIVE: CASE EVENT DATE: 20240401
